FAERS Safety Report 6232482-7 (Version None)
Quarter: 2009Q2

REPORT INFORMATION
  Report Type: 
  Country: None (occurrence: None)
  Receive Date: 20090612
  Receipt Date: 20090527
  Transmission Date: 20091009
  Serious: Yes (Life-Threatening)
  Sender: FDA-Public Use
  Company Number: 000939

PATIENT
  Age: 42 Year
  Sex: Male

DRUGS (2)
  1. GLYCERYL TRINITRATE [Suspect]
     Indication: BLOOD PRESSURE INCREASED
     Dosage: (SUBLINGUAL)
  2. ASPIRIN [Concomitant]

REACTIONS (2)
  - VENTRICULAR ASYSTOLE [None]
  - VENTRICULAR FIBRILLATION [None]
